FAERS Safety Report 8389812-X (Version None)
Quarter: 2012Q2

REPORT INFORMATION
  Report Type: 
  Country: None (occurrence: None)
  Receive Date: 20120529
  Receipt Date: 20120524
  Transmission Date: 20120825
  Serious: Yes (Other)
  Sender: FDA-Public Use
  Company Number: PHHY2012MX045223

PATIENT
  Sex: Male

DRUGS (3)
  1. PHENOBARBITAL TAB [Concomitant]
     Dosage: 1 DF, DAILY
  2. TEGRETOL [Suspect]
     Indication: EPILEPSY
     Dosage: 400 MG, DAILY
     Route: 048
  3. KEPPRA [Concomitant]
     Dosage: 1 DF,DAILY

REACTIONS (3)
  - DRUG EFFECT DECREASED [None]
  - WEIGHT INCREASED [None]
  - MEMORY IMPAIRMENT [None]
